FAERS Safety Report 7755812-3 (Version None)
Quarter: 2011Q3

REPORT INFORMATION
  Report Type: 
  Country: None (occurrence: None)
  Receive Date: 20110916
  Receipt Date: 20110906
  Transmission Date: 20111222
  Serious: Yes (Other)
  Sender: FDA-Public Use
  Company Number: US-CELGENEUS-163-21880-11090716

PATIENT
  Sex: Male

DRUGS (15)
  1. REVLIMID [Suspect]
     Dosage: 15 MILLIGRAM
     Route: 048
     Dates: start: 20110101
  2. ALTACE [Concomitant]
     Dosage: 5 MILLIGRAM
     Route: 048
     Dates: start: 20010101
  3. LIPITOR [Concomitant]
     Dosage: 40 MILLIGRAM
     Route: 048
     Dates: start: 20040101
  4. VICODIN [Concomitant]
     Dosage: 500 MILLIGRAM
     Route: 048
     Dates: start: 20060101
  5. REVLIMID [Suspect]
     Indication: MULTIPLE MYELOMA
     Dosage: 15 MILLIGRAM
     Route: 048
     Dates: start: 20101001
  6. TAMSULOSIN HCL [Concomitant]
     Dosage: .4 MILLIGRAM
     Route: 048
     Dates: start: 20110801
  7. ASPIRIN [Concomitant]
     Dosage: 81 MILLIGRAM
     Route: 048
     Dates: start: 19960101
  8. VALTREX [Concomitant]
     Indication: PROPHYLAXIS
     Dosage: 500 MILLIGRAM
     Route: 048
     Dates: start: 20070101
  9. PREDNISONE [Concomitant]
     Dosage: 20 MILLIGRAM
     Route: 048
     Dates: start: 20060101
  10. FLUOROURACIL [Concomitant]
     Route: 061
     Dates: start: 20110817
  11. AMBIEN [Concomitant]
     Dosage: 10 MILLIGRAM
     Route: 048
     Dates: start: 20070101
  12. WARFARIN SODIUM [Suspect]
     Indication: PROPHYLAXIS
     Dosage: 1 MILLIGRAM
     Route: 048
     Dates: start: 20060101
  13. PROTONIX [Concomitant]
     Dosage: 40 MILLIGRAM
     Route: 048
     Dates: start: 20070101
  14. POTASSIUM [Concomitant]
     Dosage: 10 MILLIGRAM
     Route: 048
     Dates: start: 20090101
  15. VITAMIN B-12 [Concomitant]
     Dosage: 1000 MILLIGRAM
     Route: 048
     Dates: start: 20090101

REACTIONS (3)
  - BASAL CELL CARCINOMA [None]
  - POLLAKIURIA [None]
  - MICTURITION URGENCY [None]
